FAERS Safety Report 4784650-9 (Version None)
Quarter: 2005Q3

REPORT INFORMATION
  Report Type: 
  Country: None (occurrence: None)
  Receive Date: 20050930
  Receipt Date: 20050920
  Transmission Date: 20060218
  Serious: Yes (Other)
  Sender: FDA-Public Use
  Company Number: AU-MERCK-0509AUS00130B1

PATIENT
  Sex: Male
  Weight: 2 kg

DRUGS (4)
  1. PRINIVIL [Suspect]
     Indication: LEFT VENTRICULAR FAILURE
  2. DIGOXIN [Concomitant]
     Indication: LEFT VENTRICULAR FAILURE
  3. FUROSEMIDE [Concomitant]
     Indication: LEFT VENTRICULAR FAILURE
  4. ASPIRIN [Concomitant]
     Indication: LEFT VENTRICULAR FAILURE

REACTIONS (2)
  - PREMATURE LABOUR [None]
  - SMALL FOR DATES BABY [None]
